FAERS Safety Report 25593490 (Version 2)
Quarter: 2025Q3

REPORT INFORMATION
  Report Type: Report from Study
  Country: US (occurrence: US)
  Receive Date: 20250722
  Receipt Date: 20250818
  Transmission Date: 20251021
  Serious: Yes (Other)
  Sender: ALEXION PHARMACEUTICALS
  Company Number: US-AstraZeneca-CH-00912870A

PATIENT
  Age: 79 Year
  Sex: Female

DRUGS (1)
  1. SOLIRIS [Suspect]
     Active Substance: ECULIZUMAB
     Indication: Paroxysmal nocturnal haemoglobinuria

REACTIONS (4)
  - Atrial fibrillation [Recovered/Resolved]
  - Nerve injury [Not Recovered/Not Resolved]
  - Limb injury [Not Recovered/Not Resolved]
  - Cardiac murmur [Recovering/Resolving]

NARRATIVE: CASE EVENT DATE: 20250701
